FAERS Safety Report 9834125 (Version 2)
Quarter: 2014Q1

REPORT INFORMATION
  Report Type: Spontaneous
  Country: BR (occurrence: BR)
  Receive Date: 20140122
  Receipt Date: 20140131
  Transmission Date: 20141002
  Serious: Yes (Death, Hospitalization)
  Sender: FDA-Public Use
  Company Number: BR-B.I. PHARMACEUTICALS,INC./RIDGEFIELD-2014-BI-02572BR

PATIENT
  Age: 83 Year
  Sex: Female

DRUGS (8)
  1. PRADAXA [Suspect]
     Indication: THROMBOSIS PROPHYLAXIS
     Dosage: 300 MG
     Route: 048
     Dates: start: 20131220, end: 20131225
  2. ATENOLOL [Concomitant]
     Indication: HYPERTENSION
     Dosage: 50 MG
     Route: 048
     Dates: end: 20131225
  3. FLUOXETINA [Concomitant]
     Indication: DEPRESSION
     Dosage: 20 MG
     Route: 048
     Dates: end: 20131225
  4. OMEPRAZOL [Concomitant]
     Dates: end: 20131225
  5. HYDROCHLOROTHIAZIDE [Concomitant]
     Indication: HYPERTENSION
     Dosage: 25 MG
     Route: 048
     Dates: end: 20131225
  6. GLIMEPIRIDE [Concomitant]
     Indication: DIABETES MELLITUS
     Dosage: 4 MG
     Route: 048
     Dates: end: 20131225
  7. SIVMASTATINA [Concomitant]
     Indication: BLOOD CHOLESTEROL INCREASED
     Dosage: 20 MG
     Route: 048
     Dates: end: 20131225
  8. PURAN T4 [Concomitant]
     Indication: HYPOTHYROIDISM
     Dosage: 200 MG
     Route: 048
     Dates: end: 20131225

REACTIONS (2)
  - Gingival bleeding [Fatal]
  - Haemorrhage [Fatal]
